FAERS Safety Report 12501947 (Version 1)
Quarter: 2016Q2

REPORT INFORMATION
  Report Type: Spontaneous
  Country: US (occurrence: US)
  Receive Date: 20160627
  Receipt Date: 20160627
  Transmission Date: 20160815
  Serious: No
  Sender: FDA-Public Use
  Company Number: US-BAYER-2016-119223

PATIENT
  Age: 94 Year
  Sex: Male

DRUGS (2)
  1. XOFIGO [Suspect]
     Active Substance: RADIUM RA-223 DICHLORIDE
     Indication: METASTASES TO BONE
  2. XOFIGO [Suspect]
     Active Substance: RADIUM RA-223 DICHLORIDE
     Indication: PROSTATE CANCER METASTATIC
     Dosage: 55 KBQ/KG
     Route: 042
     Dates: start: 201605

REACTIONS (5)
  - Vomiting [None]
  - Asthenia [None]
  - Feeling abnormal [None]
  - Dysphagia [None]
  - Vomiting [None]

NARRATIVE: CASE EVENT DATE: 2016
